FAERS Safety Report 7228235-3 (Version None)
Quarter: 2011Q1

REPORT INFORMATION
  Report Type: 
  Country: None (occurrence: None)
  Receive Date: 20110114
  Receipt Date: 20110106
  Transmission Date: 20110831
  Serious: Yes (Hospitalization)
  Sender: FDA-Public Use
  Company Number: CHPA2011GB00672

PATIENT
  Sex: Female

DRUGS (5)
  1. CANNABIS [Suspect]
     Dosage: UNK, UNK
  2. NICOTINE [Suspect]
     Dosage: UNK, UNK
  3. ALCOHOL [Suspect]
     Dosage: 2 BOTTLES OF WINE, UNK
  4. PARACETAMOL [Suspect]
     Dosage: 7.5 G, UNK
  5. ALCOHOL [Suspect]
     Dosage: UNK, UNK

REACTIONS (2)
  - OVERDOSE [None]
  - DRUG EXPOSURE DURING PREGNANCY [None]
